FAERS Safety Report 6103573-6 (Version None)
Quarter: 2009Q1

REPORT INFORMATION
  Report Type: 
  Country: None (occurrence: None)
  Receive Date: 20090305
  Receipt Date: 20090223
  Transmission Date: 20090719
  Serious: Yes (Life-Threatening, Hospitalization)
  Sender: FDA-Public Use
  Company Number: FR-ROCHE-616972

PATIENT
  Sex: Female

DRUGS (7)
  1. CAPECITABINE [Suspect]
     Indication: GASTRIC CANCER
     Route: 048
     Dates: start: 20070912, end: 20070924
  2. IRINOTECAN HCL [Suspect]
     Indication: GASTRIC CANCER
     Route: 065
  3. EPIRUBICIN [Suspect]
     Indication: GASTRIC CANCER
     Route: 065
     Dates: start: 20070911
  4. CISPLATIN [Suspect]
     Indication: GASTRIC CANCER
     Route: 065
     Dates: start: 20070911
  5. FOLINIC ACID [Suspect]
     Indication: GASTRIC CANCER
     Route: 065
  6. FLUOROURACIL [Suspect]
     Indication: GASTRIC CANCER
     Route: 065
  7. ALUMINUM HYDROXIDE AND MAGNESIUM TRISILICATE [Concomitant]

REACTIONS (2)
  - FEBRILE BONE MARROW APLASIA [None]
  - NEUTROPENIA [None]
